FAERS Safety Report 7280498-4 (Version None)
Quarter: 2011Q1

REPORT INFORMATION
  Report Type: 
  Country: None (occurrence: None)
  Receive Date: 20110208
  Receipt Date: 20110128
  Transmission Date: 20110831
  Serious: Yes (Other)
  Sender: FDA-Public Use
  Company Number: BR-SANOFI-AVENTIS-2011SA005762

PATIENT
  Sex: Male

DRUGS (3)
  1. CHLOROQUINE PHOSPHATE [Suspect]
     Route: 048
     Dates: start: 20040909, end: 20040909
  2. CHLOROQUINE PHOSPHATE [Suspect]
     Route: 048
     Dates: start: 20040910, end: 20040911
  3. PRIMAQUINE [Suspect]
     Route: 048
     Dates: start: 20040909, end: 20040915

REACTIONS (2)
  - MALARIA [None]
  - UNDERDOSE [None]
